FAERS Safety Report 5044497-5 (Version None)
Quarter: 2006Q3

REPORT INFORMATION
  Report Type: 
  Country: None (occurrence: None)
  Receive Date: 20060706
  Receipt Date: 20060704
  Transmission Date: 20061208
  Serious: Yes (Hospitalization)
  Sender: FDA-Public Use
  Company Number: FR-GLAXOSMITHKLINE-B0429815A

PATIENT
  Age: 58 Year
  Sex: Male
  Weight: 55 kg

DRUGS (11)
  1. CLAVENTIN [Suspect]
     Dosage: 3G FOUR TIMES PER DAY
     Route: 042
     Dates: start: 20060515, end: 20060523
  2. RAPIFEN [Suspect]
     Route: 042
     Dates: start: 20060513, end: 20060523
  3. LOVENOX [Suspect]
     Route: 042
     Dates: start: 20060513, end: 20060523
  4. FUNGIZONE [Suspect]
     Indication: SINUSITIS
     Route: 042
     Dates: start: 20060512, end: 20060517
  5. CATAPRES [Concomitant]
     Route: 042
     Dates: start: 20060513, end: 20060515
  6. PLAVIX [Concomitant]
     Route: 065
  7. PRAVASTATIN [Concomitant]
     Route: 065
  8. AMLOR [Concomitant]
     Route: 065
  9. DI-ANTALVIC [Concomitant]
     Route: 065
  10. FERROGRAD [Concomitant]
     Route: 065
  11. CONTRAST MEDIUM (UNSPECIFIED) [Concomitant]
     Indication: SCAN
     Dates: start: 20060428, end: 20060505

REACTIONS (1)
  - RENAL FAILURE ACUTE [None]
